FAERS Safety Report 9363807 (Version 1)
Quarter: 2013Q2

REPORT INFORMATION
  Report Type: Spontaneous
  Country: US (occurrence: US)
  Receive Date: 20130624
  Receipt Date: 20130624
  Transmission Date: 20140414
  Serious: No
  Sender: FDA-Public Use
  Company Number: US-US-EMD SERONO, INC.-7021947

PATIENT
  Sex: Female
  Weight: 45 kg

DRUGS (3)
  1. REBIF [Suspect]
     Indication: MULTIPLE SCLEROSIS
     Route: 058
     Dates: start: 20100526
  2. ALEVE [Concomitant]
     Indication: PREMEDICATION
  3. VALIUM [Concomitant]
     Indication: PRODUCT USED FOR UNKNOWN INDICATION

REACTIONS (5)
  - Weight decreased [Unknown]
  - Multiple sclerosis relapse [Unknown]
  - Thyroid function test abnormal [Unknown]
  - Fatigue [Unknown]
  - Injection site erythema [Unknown]
